FAERS Safety Report 20611081 (Version 1)
Quarter: 2022Q1

REPORT INFORMATION
  Report Type: Spontaneous
  Country: US (occurrence: US)
  Receive Date: 20220318
  Receipt Date: 20220318
  Transmission Date: 20220424
  Serious: Yes (Other)
  Sender: FDA-Public Use
  Company Number: US-GLAXOSMITHKLINE-US2022GSK048736

PATIENT
  Sex: Male

DRUGS (2)
  1. ZANTAC [Suspect]
     Active Substance: RANITIDINE HYDROCHLORIDE
     Indication: Abdominal pain upper
     Dosage: 150 MG, WE
     Route: 065
     Dates: start: 199901, end: 201505
  2. ZANTAC [Suspect]
     Active Substance: RANITIDINE HYDROCHLORIDE
     Indication: Abdominal pain upper
     Dosage: 150 MG, WE
     Route: 065
     Dates: start: 199901, end: 201505

REACTIONS (1)
  - Hepatic cancer [Unknown]
